FAERS Safety Report 11579671 (Version 1)
Quarter: 2015Q3

REPORT INFORMATION
  Report Type: Spontaneous
  Country: US (occurrence: US)
  Receive Date: 20150916
  Receipt Date: 20150916
  Transmission Date: 20151125
  Serious: No
  Sender: FDA-Public Use
  Company Number: US-ELI_LILLY_AND_COMPANY-US200805004194

PATIENT
  Age: 70 Year
  Sex: Female
  Weight: 72.56 kg

DRUGS (7)
  1. ALLEGRA [Concomitant]
     Active Substance: FEXOFENADINE HYDROCHLORIDE
     Indication: HYPERSENSITIVITY
     Dosage: 180 MG, DAILY (1/D)
     Route: 048
     Dates: start: 20030429
  2. FORTEO [Suspect]
     Active Substance: TERIPARATIDE
     Indication: OSTEOPOROSIS
     Dosage: 20 UG, DAILY (1/D)
     Route: 058
     Dates: start: 20080212, end: 20080502
  3. LIPITOR [Concomitant]
     Active Substance: ATORVASTATIN CALCIUM
     Dosage: 80 MG, DAILY (1/D)
     Route: 048
     Dates: start: 20060612
  4. ACTONEL [Concomitant]
     Active Substance: RISEDRONATE SODIUM
     Dosage: 75 MG, 2/M
     Route: 048
  5. NEXIUM /USA/ [Concomitant]
     Dosage: 40 MG, 2/D
     Route: 048
     Dates: start: 20051115
  6. ACTONEL [Concomitant]
     Active Substance: RISEDRONATE SODIUM
     Indication: OSTEOPOROSIS
     Dosage: 30 MG, WEEKLY (1/W) AS NEEDED
     Route: 048
  7. KENALOG [Concomitant]
     Active Substance: TRIAMCINOLONE ACETONIDE
     Dosage: 0.1%, ADD TO 15 MG ENCERINE CREAM AND APPLY  2/D
     Route: 061

REACTIONS (3)
  - Pain in extremity [Unknown]
  - Bone pain [Recovered/Resolved]
  - Chondrocalcinosis [Unknown]

NARRATIVE: CASE EVENT DATE: 20080319
